FAERS Safety Report 7637685-2 (Version None)
Quarter: 2011Q3

REPORT INFORMATION
  Report Type: 
  Country: None (occurrence: None)
  Receive Date: 20110726
  Receipt Date: 20110527
  Transmission Date: 20111222
  Serious: No
  Sender: FDA-Public Use
  Company Number: US-AMGEN-USASP2011028119

PATIENT
  Age: 50 Year
  Sex: Female
  Weight: 58.957 kg

DRUGS (1)
  1. PROCRIT [Suspect]
     Indication: RENAL FAILURE CHRONIC
     Dosage: 20000 IU, Q2WK

REACTIONS (2)
  - PYREXIA [None]
  - INCORRECT PRODUCT STORAGE [None]
